FAERS Safety Report 6357320-3 (Version None)
Quarter: 2009Q3

REPORT INFORMATION
  Report Type: 
  Country: None (occurrence: None)
  Receive Date: 20090916
  Receipt Date: 20070423
  Transmission Date: 20100115
  Serious: Yes (Other)
  Sender: FDA-Public Use
  Company Number: US-ASTRAZENECA-2009SE11117

PATIENT
  Age: 534 Month
  Sex: Male
  Weight: 106.1 kg

DRUGS (18)
  1. SEROQUEL [Suspect]
     Indication: ANXIETY
     Route: 048
     Dates: start: 20020702, end: 20021217
  2. SEROQUEL [Suspect]
     Indication: TENSION
     Route: 048
     Dates: start: 20020702, end: 20021217
  3. SEROQUEL [Suspect]
     Route: 048
     Dates: start: 20030128
  4. SEROQUEL [Suspect]
     Route: 048
     Dates: start: 20030128
  5. SYNTHROID [Concomitant]
     Dosage: 0.2 MG TO 0.5 MG
     Route: 048
     Dates: start: 19870101
  6. LITHIUM CARBONATE [Concomitant]
     Indication: BIPOLAR I DISORDER
     Dates: start: 19950101
  7. DESIPRAMINE [Concomitant]
     Dates: start: 19950101
  8. NAPROSYN [Concomitant]
     Indication: PAIN
     Dosage: 500 MG B.I.D PRN
     Route: 048
     Dates: start: 19990107
  9. LUVOX [Concomitant]
     Dates: start: 19990420
  10. CELEBREX [Concomitant]
     Dates: start: 19990107
  11. FLEXERIL [Concomitant]
     Dates: start: 19990107
  12. SOMA [Concomitant]
     Dates: start: 19991108
  13. REMERON [Concomitant]
     Dates: start: 20021217, end: 20030128
  14. ASPIRIN [Concomitant]
     Route: 048
     Dates: start: 20050331
  15. WELLBUTRIN XL [Concomitant]
     Route: 048
     Dates: start: 20050331
  16. ATENOLOL [Concomitant]
     Route: 048
     Dates: start: 20050331
  17. HYDROCHLOROTHIAZIDE [Concomitant]
     Dosage: 25 MG 1/2 TABLET A DAY
     Dates: start: 20050331
  18. LAMICTAL [Concomitant]
     Dates: start: 20050331

REACTIONS (9)
  - ANAEMIA [None]
  - ANTISOCIAL PERSONALITY DISORDER [None]
  - APPENDICECTOMY [None]
  - BLOOD GLUCOSE INCREASED [None]
  - GASTRITIS [None]
  - HYPOAESTHESIA [None]
  - NEUROPATHY PERIPHERAL [None]
  - OBESITY [None]
  - TOBACCO ABUSE [None]
